FAERS Safety Report 9617735 (Version 3)
Quarter: 2013Q4

REPORT INFORMATION
  Report Type: Spontaneous
  Country: US (occurrence: US)
  Receive Date: 20131011
  Receipt Date: 20131106
  Transmission Date: 20140711
  Serious: Yes (Death, Other)
  Sender: FDA-Public Use
  Company Number: US-CELGENEUS-163-POMAL-13100463

PATIENT
  Sex: Female

DRUGS (1)
  1. POMALYST [Suspect]
     Indication: AMYLOIDOSIS
     Dosage: 1 MILLIGRAM
     Route: 048
     Dates: start: 20130813

REACTIONS (2)
  - Amyloidosis [Fatal]
  - Renal failure acute [Not Recovered/Not Resolved]
